FAERS Safety Report 21608939 (Version 1)
Quarter: 2022Q4

REPORT INFORMATION
  Report Type: Spontaneous
  Country: US (occurrence: None)
  Receive Date: 20221116
  Receipt Date: 20221116
  Transmission Date: 20230113
  Serious: No
  Sender: FDA-Public Use
  Company Number: None

PATIENT
  Sex: Male

DRUGS (2)
  1. VIGABATRIN [Suspect]
     Active Substance: VIGABATRIN
     Indication: Epilepsy
     Dosage: FREQUENCY : DAILY;?
  2. KEPPRA [Concomitant]
     Active Substance: LEVETIRACETAM

REACTIONS (2)
  - Therapy interrupted [None]
  - Adverse event [None]
